FAERS Safety Report 26058059 (Version 2)
Quarter: 2025Q4

REPORT INFORMATION
  Report Type: Report from Study
  Country: AM (occurrence: AM)
  Receive Date: 20251118
  Receipt Date: 20251128
  Transmission Date: 20260118
  Serious: No
  Sender: KARYOPHARM THERAPEUTICS
  Company Number: AM-KARYOPHARM-2025KPT100949

PATIENT
  Age: 63 Year
  Sex: Female

DRUGS (3)
  1. SELINEXOR [Suspect]
     Active Substance: SELINEXOR
     Indication: Ovarian cancer
     Dosage: 60 MG WEEKLY
     Dates: end: 2025
  2. SELINEXOR [Suspect]
     Active Substance: SELINEXOR
     Dosage: 40 MG WEEKLY
     Dates: start: 2025, end: 2025
  3. SELINEXOR [Suspect]
     Active Substance: SELINEXOR
     Dosage: 60 MG WEEKLY
     Dates: start: 2025

REACTIONS (2)
  - Abdominal pain upper [Recovered/Resolved]
  - Fatigue [Recovering/Resolving]

NARRATIVE: CASE EVENT DATE: 20250930
